FAERS Safety Report 9812534 (Version 1)
Quarter: 2014Q1

REPORT INFORMATION
  Report Type: Other
  Country: CA (occurrence: CA)
  Receive Date: 20140113
  Receipt Date: 20140113
  Transmission Date: 20141002
  Serious: Yes (Other)
  Sender: FDA-Public Use
  Company Number: CA-BRISTOL-MYERS SQUIBB COMPANY-19981828

PATIENT
  Age: 42 Year
  Sex: Female

DRUGS (4)
  1. ATAZANAVIR [Suspect]
     Indication: ANTIRETROVIRAL THERAPY
  2. RITONAVIR [Interacting]
     Indication: ANTIRETROVIRAL THERAPY
  3. ACTIVATED CHARCOAL [Interacting]
     Indication: GASTROINTESTINAL DISORDER
  4. TENOFOVIR DF + EMTRICITABINE [Concomitant]
     Dates: start: 200909

REACTIONS (4)
  - Drug interaction [Unknown]
  - Drug level below therapeutic [Unknown]
  - Virologic failure [Recovered/Resolved]
  - Drug resistance [Unknown]
